FAERS Safety Report 21563624 (Version 1)
Quarter: 2022Q4

REPORT INFORMATION
  Report Type: Spontaneous
  Country: US (occurrence: US)
  Receive Date: 20221108
  Receipt Date: 20221108
  Transmission Date: 20230113
  Serious: No
  Sender: FDA-Public Use
  Company Number: US-SA-SAC20221102000307

PATIENT
  Age: 40 Year
  Sex: Male
  Weight: 81.633 kg

DRUGS (1)
  1. DUPIXENT [Suspect]
     Active Substance: DUPILUMAB
     Indication: Eosinophilic oesophagitis
     Dosage: 300 MG, QOW
     Route: 058
     Dates: start: 20220901

REACTIONS (6)
  - Maculopathy [Unknown]
  - Contusion [Unknown]
  - Paraesthesia [Unknown]
  - Injection site erythema [Not Recovered/Not Resolved]
  - Rash erythematous [Unknown]
  - Rash [Unknown]

NARRATIVE: CASE EVENT DATE: 20220901
